FAERS Safety Report 5491686-1 (Version None)
Quarter: 2007Q4

REPORT INFORMATION
  Report Type: 
  Country: None (occurrence: None)
  Receive Date: 20071018
  Receipt Date: 20071018
  Transmission Date: 20080405
  Serious: Yes (Hospitalization)
  Sender: FDA-Public Use
  Company Number: None

PATIENT
  Age: 61 Year
  Sex: Female
  Weight: 64 kg

DRUGS (4)
  1. LOVENOX [Suspect]
     Indication: THROMBOSIS PROPHYLAXIS
     Dosage: 40 MG QD SQ
     Route: 058
     Dates: start: 20071007, end: 20071010
  2. LOVENOX [Suspect]
     Indication: ATRIAL FIBRILLATION
     Dosage: 60 MG Q12 HR SQ
     Route: 058
     Dates: start: 20071010, end: 20071012
  3. LOVENOX [Suspect]
     Indication: CEREBROVASCULAR ACCIDENT PROPHYLAXIS
     Dosage: 60 MG Q12 HR SQ
     Route: 058
     Dates: start: 20071010, end: 20071012
  4. ASPIRIN [Concomitant]

REACTIONS (2)
  - ATRIAL FIBRILLATION [None]
  - MUSCLE HAEMORRHAGE [None]
